FAERS Safety Report 25951431 (Version 2)
Quarter: 2025Q4

REPORT INFORMATION
  Report Type: Report from Study
  Country: ZA (occurrence: ZA)
  Receive Date: 20251023
  Receipt Date: 20251117
  Transmission Date: 20260117
  Serious: Yes (Hospitalization, Other)
  Sender: CELLTRION
  Company Number: ZA-CELLTRION INC.-2025ZA038253

PATIENT

DRUGS (6)
  1. INFLIXIMAB-DYYB [Suspect]
     Active Substance: INFLIXIMAB-DYYB
     Indication: Crohn^s disease
     Dosage: 400 MG INTRAVENOUS INFUSIONS AT 8 WEEKLY INTERVALS
     Route: 042
     Dates: start: 20241111
  2. INFLIXIMAB-DYYB [Suspect]
     Active Substance: INFLIXIMAB-DYYB
     Dosage: 400 MG INTRAVENOUS INFUSIONS AT 8 WEEKLY INTERVALS
     Route: 042
     Dates: start: 20250106
  3. INFLIXIMAB-DYYB [Suspect]
     Active Substance: INFLIXIMAB-DYYB
     Dosage: 400 MG INTRAVENOUS INFUSIONS AT 8 WEEKLY INTERVALS
     Route: 042
     Dates: start: 20250303
  4. INFLIXIMAB-DYYB [Suspect]
     Active Substance: INFLIXIMAB-DYYB
     Dosage: 400 MG INTRAVENOUS INFUSIONS AT 8 WEEKLY INTERVALS
     Route: 042
     Dates: start: 20250429
  5. INFLIXIMAB-DYYB [Suspect]
     Active Substance: INFLIXIMAB-DYYB
     Dosage: 400 MG INTRAVENOUS INFUSIONS AT 8 WEEKLY INTERVALS
     Route: 042
     Dates: start: 20250624
  6. INFLIXIMAB-DYYB [Suspect]
     Active Substance: INFLIXIMAB-DYYB
     Dosage: 700 MG AT 8 WEEKLY INTERVAL
     Route: 042
     Dates: start: 20250821

REACTIONS (1)
  - Small intestinal obstruction [Unknown]

NARRATIVE: CASE EVENT DATE: 20251016
